FAERS Safety Report 11695786 (Version 1)
Quarter: 2015Q4

REPORT INFORMATION
  Report Type: Spontaneous
  Country: US (occurrence: None)
  Receive Date: 20151103
  Receipt Date: 20151103
  Transmission Date: 20160304
  Serious: Yes (Other)
  Sender: FDA-Public Use
  Company Number: None

PATIENT
  Age: 51 Year
  Sex: Female
  Weight: 63.5 kg

DRUGS (1)
  1. LEVAQUIN [Suspect]
     Active Substance: LEVOFLOXACIN
     Indication: SINUSITIS
     Dates: start: 20130209, end: 20130214

REACTIONS (7)
  - Impaired work ability [None]
  - Tremor [None]
  - Panic attack [None]
  - Pain [None]
  - Cognitive disorder [None]
  - Disorientation [None]
  - Paraesthesia [None]

NARRATIVE: CASE EVENT DATE: 20130209
